FAERS Safety Report 9770251 (Version 3)
Quarter: 2014Q1

REPORT INFORMATION
  Report Type: Spontaneous
  Country: JP (occurrence: JP)
  Receive Date: 20131218
  Receipt Date: 20140312
  Transmission Date: 20141002
  Serious: Yes (Death)
  Sender: FDA-Public Use
  Company Number: JP-B.I. PHARMACEUTICALS,INC./RIDGEFIELD-2013-BI-42482NB

PATIENT
  Age: 85 Year
  Sex: Female
  Weight: 56 kg

DRUGS (4)
  1. PRAZAXA [Suspect]
     Indication: CEREBROVASCULAR ACCIDENT PROPHYLAXIS
     Dosage: 220 MG
     Route: 048
     Dates: start: 20121010, end: 20131115
  2. ADETPHOS / ADENOSINE TRIPHOSPHATE DISODIUM HYDRATE [Concomitant]
     Indication: DIZZINESS
     Dosage: 120 MG
     Route: 048
     Dates: start: 20121005
  3. MAINTATE / BISOPROLOL FUMARATE [Concomitant]
     Indication: TACHYCARDIA
     Dosage: 5 MG
     Route: 048
     Dates: start: 20121126
  4. NEXIUM / ESOMEPRAZOLE MAGNESIUM HYDRATE [Concomitant]
     Indication: GASTRIC ULCER
     Dosage: 20 MG
     Route: 048
     Dates: start: 20130613, end: 20131115

REACTIONS (2)
  - Embolic cerebral infarction [Fatal]
  - Drug ineffective [Unknown]
